FAERS Safety Report 16794507 (Version 3)
Quarter: 2023Q2

REPORT INFORMATION
  Report Type: Report from Study
  Country: US (occurrence: US)
  Receive Date: 20190911
  Receipt Date: 20230612
  Transmission Date: 20230722
  Serious: No
  Sender: FDA-Public Use
  Company Number: US-SHIRE-US201929512

PATIENT
  Age: 8 Year
  Sex: Male

DRUGS (2)
  1. IDURSULFASE [Suspect]
     Active Substance: IDURSULFASE
     Indication: Gaucher^s disease
     Dosage: 3 DOSAGE FORM, 1/WEEK
     Route: 042
     Dates: start: 20151124
  2. IDURSULFASE [Suspect]
     Active Substance: IDURSULFASE
     Indication: Mucopolysaccharidosis II
     Dosage: 4 DOSAGE FORM, 1/WEEK
     Route: 042

REACTIONS (5)
  - Intracranial mass [Not Recovered/Not Resolved]
  - Sleep apnoea syndrome [Not Recovered/Not Resolved]
  - Viral infection [Recovered/Resolved]
  - Growth accelerated [Unknown]
  - Product dose omission issue [Unknown]

NARRATIVE: CASE EVENT DATE: 20191120
